FAERS Safety Report 10885266 (Version 1)
Quarter: 2015Q1

REPORT INFORMATION
  Report Type: Spontaneous
  Country: GB (occurrence: GB)
  Receive Date: 20150304
  Receipt Date: 20150304
  Transmission Date: 20150721
  Serious: Yes (Other)
  Sender: FDA-Public Use
  Company Number: GB-ASTRAZENECA-2015SE18662

PATIENT
  Age: 45 Year
  Sex: Female
  Weight: 114.3 kg

DRUGS (2)
  1. ZOMIG [Suspect]
     Active Substance: ZOLMITRIPTAN
     Indication: MIGRAINE
     Dosage: ONE TABLET TAKEN IF I FELT A MIGRAINE COME ON.
     Route: 048
  2. LEVOTHYROXINE [Concomitant]
     Active Substance: LEVOTHYROXINE

REACTIONS (3)
  - Hypokinesia [Recovered/Resolved]
  - Dysphonia [Recovered/Resolved]
  - Muscle tightness [Recovered/Resolved]
